FAERS Safety Report 14893590 (Version 4)
Quarter: 2019Q1

REPORT INFORMATION
  Report Type: Spontaneous
  Country: CN (occurrence: CN)
  Receive Date: 20180514
  Receipt Date: 20190321
  Transmission Date: 20190417
  Serious: Yes (Life-Threatening, Hospitalization)
  Sender: FDA-Public Use
  Company Number: CN-TAKEDA-2018MPI005424

PATIENT
  Age: 77 Year
  Sex: Male
  Weight: 60 kg

DRUGS (36)
  1. TRAMADOL HYDROCHLORIDE. [Concomitant]
     Active Substance: TRAMADOL HYDROCHLORIDE
     Indication: BONE PAIN
     Dosage: 0.1 GRAM
     Route: 065
  2. GLICLAZIDE [Concomitant]
     Active Substance: GLICLAZIDE
     Indication: TYPE 2 DIABETES MELLITUS
     Dosage: 80 MILLIGRAM
     Route: 065
  3. VELCADE [Suspect]
     Active Substance: BORTEZOMIB
     Indication: PLASMA CELL MYELOMA
     Dosage: UNK
     Route: 058
     Dates: start: 20180426
  4. VELCADE [Suspect]
     Active Substance: BORTEZOMIB
     Dosage: 1 MG/M2, UNK
     Route: 058
     Dates: start: 20180524
  5. TRAMADOL HYDROCHLORIDE. [Concomitant]
     Active Substance: TRAMADOL HYDROCHLORIDE
     Indication: PAIN
  6. PENCICLOVIR. [Concomitant]
     Active Substance: PENCICLOVIR
     Indication: HERPES ZOSTER
     Dosage: UNK
     Route: 065
  7. SILICONE OIL [Concomitant]
     Indication: PREMEDICATION
     Dosage: 30 MILLIGRAM/KILOGRAM
     Route: 065
  8. VORICONAZOLE ACCORD [Concomitant]
     Indication: HERPES ZOSTER
     Dosage: 200 MILLIGRAM
     Route: 065
  9. OXYCODONE AND ACETAMINOPHEN [Concomitant]
     Active Substance: ACETAMINOPHEN\OXYCODONE HYDROCHLORIDE
     Indication: BONE PAIN
     Dosage: 5 MILLIGRAM
     Route: 065
  10. ACYCLOVIR                          /00587301/ [Concomitant]
     Active Substance: ACYCLOVIR
     Dosage: 250 MILLIGRAM
     Route: 065
  11. OMEPRAZOLE SODIUM [Concomitant]
     Active Substance: OMEPRAZOLE SODIUM
     Indication: GASTROINTESTINAL DISORDER THERAPY
     Dosage: 40 MILLIGRAM
     Route: 065
  12. PREDNISONE. [Suspect]
     Active Substance: PREDNISONE
     Indication: PLASMA CELL MYELOMA
     Dosage: UNK
     Route: 065
     Dates: start: 20180426
  13. PAMIDRONATE DISODIUM. [Concomitant]
     Active Substance: PAMIDRONATE DISODIUM
     Indication: HERPES ZOSTER
     Dosage: 60 MILLIGRAM
     Route: 065
  14. PRONASE [Concomitant]
     Active Substance: PROTEASE
     Indication: PREMEDICATION
     Dosage: UNK
     Route: 065
  15. GLIMEPIRIDE. [Concomitant]
     Active Substance: GLIMEPIRIDE
     Indication: TYPE 2 DIABETES MELLITUS
     Dosage: UNK
     Route: 065
  16. LACTULOSE AL [Concomitant]
     Active Substance: LACTULOSE
     Dosage: 200 MILLILITER
     Route: 048
  17. DYCLONINE HYDROCHLORIDE [Concomitant]
     Active Substance: DYCLONINE HYDROCHLORIDE
     Indication: ANAESTHESIA
     Dosage: 0.1 GRAM
     Route: 065
  18. METFORMIN [Concomitant]
     Active Substance: METFORMIN HYDROCHLORIDE
     Indication: TYPE 2 DIABETES MELLITUS
     Dosage: 0.25 GRAM
     Route: 065
  19. PALONOSETRON HYDROCHLORIDE. [Concomitant]
     Active Substance: PALONOSETRON HYDROCHLORIDE
     Indication: PROPHYLAXIS OF NAUSEA AND VOMITING
     Dosage: 0.25 MILLIGRAM
     Route: 065
  20. PARAOXON [Concomitant]
     Indication: PROPHYLAXIS OF NAUSEA AND VOMITING
     Dosage: 25 MILLIGRAM
     Route: 065
  21. ACARBOSE. [Concomitant]
     Active Substance: ACARBOSE
     Indication: TYPE 2 DIABETES MELLITUS
     Dosage: 50 MILLIGRAM
     Route: 065
  22. TROPISETRON HYDROCHLORIDE [Concomitant]
     Active Substance: TROPISETRON HYDROCHLORIDE
     Indication: PROPHYLAXIS OF NAUSEA AND VOMITING
     Dosage: 5 MILLIGRAM
     Route: 065
  23. DARATUMUMAB [Suspect]
     Active Substance: DARATUMUMAB
     Indication: PLASMA CELL MYELOMA
     Dosage: UNK
     Route: 042
     Dates: start: 20180426
  24. ADENOSINE CYCLOPHOSPHATE [Concomitant]
     Active Substance: ADENOSINE
     Indication: PROPHYLAXIS
     Dosage: 40 MILLIGRAM
     Route: 065
  25. MORPHINE HYDROCHLORIDE [Concomitant]
     Active Substance: MORPHINE HYDROCHLORIDE
     Indication: BONE PAIN
     Dosage: 10 MICROGRAM
     Route: 065
  26. CEFOSELIS SULFATE [Concomitant]
     Active Substance: CEFOSELIS SULFATE
     Indication: HERPES ZOSTER
     Dosage: 1 MILLIGRAM
     Route: 065
  27. MELPHALAN. [Suspect]
     Active Substance: MELPHALAN
     Indication: PLASMA CELL MYELOMA
     Dosage: UNK
     Route: 048
     Dates: start: 20180426
  28. LYRICA [Concomitant]
     Active Substance: PREGABALIN
     Indication: HERPES ZOSTER
     Dosage: 2 MILLIGRAM
     Route: 065
  29. BUCINNAZINE HYDROCHLORIDE [Concomitant]
     Indication: BONE PAIN
     Dosage: 0.1 GRAM
     Route: 065
  30. OMEPRAZOLE                         /00661202/ [Concomitant]
     Active Substance: OMEPRAZOLE SODIUM
     Indication: GASTROINTESTINAL DISORDER THERAPY
     Dosage: 20 MILLIGRAM
     Route: 065
  31. LYRICA [Concomitant]
     Active Substance: PREGABALIN
     Indication: BONE PAIN
     Dosage: 75 MILLIGRAM
     Route: 065
  32. INSULIN [Concomitant]
     Active Substance: INSULIN NOS
     Indication: TYPE 2 DIABETES MELLITUS
     Dosage: UNK
     Route: 065
  33. ACYCLOVIR                          /00587301/ [Concomitant]
     Active Substance: ACYCLOVIR
     Indication: HERPES ZOSTER
     Dosage: 200 MILLIGRAM
     Route: 065
  34. METOCLOPRAMIDE DIHYDROCHLORIDE MONOHYDRATE [Concomitant]
     Indication: PROCTITIS
     Dosage: 10 MICROGRAM
     Route: 065
  35. METFORMIN [Concomitant]
     Active Substance: METFORMIN HYDROCHLORIDE
     Dosage: 0.5 GRAM
     Route: 065
  36. PARAOXON [Concomitant]
     Dosage: 0.25 MILLIGRAM
     Route: 065

REACTIONS (3)
  - Neutrophil count decreased [Recovered/Resolved]
  - White blood cell count decreased [Recovered/Resolved]
  - Platelet count decreased [Recovered/Resolved]

NARRATIVE: CASE EVENT DATE: 20180508
